FAERS Safety Report 6822886-3 (Version None)
Quarter: 2010Q3

REPORT INFORMATION
  Report Type: 
  Country: None (occurrence: None)
  Receive Date: 20100706
  Receipt Date: 20100706
  Transmission Date: 20110219
  Serious: Yes (Hospitalization)
  Sender: FDA-Public Use
  Company Number: None

PATIENT
  Age: 80 Year
  Sex: Male
  Weight: 60.782 kg

DRUGS (4)
  1. NAVELBINE [Suspect]
     Dosage: 40MG WEEKLY IV
     Route: 042
     Dates: start: 20100428, end: 20100504
  2. ALOXI [Concomitant]
  3. DECADRON [Concomitant]
  4. ASPIRIN [Concomitant]

REACTIONS (2)
  - CHEST PAIN [None]
  - NAUSEA [None]
